FAERS Safety Report 4524880-4 (Version None)
Quarter: 2004Q4

REPORT INFORMATION
  Report Type: 
  Country: None (occurrence: None)
  Receive Date: 20041117
  Receipt Date: 20040124
  Transmission Date: 20050328
  Serious: Yes (Other)
  Sender: FDA-Public Use
  Company Number: 2004S1000247

PATIENT
  Age: 68 Year
  Sex: Male

DRUGS (8)
  1. CLOZAPINE [Suspect]
     Dosage: 50MG QD, ORAL
     Route: 048
     Dates: start: 20000407
  2. CLOZAPINE [Suspect]
     Dosage: 300MG Q HS, ORAL
     Route: 048
     Dates: start: 20000407
  3. BUPROPION HCL [Concomitant]
  4. DIVALPROEX SODIUM [Concomitant]
  5. ESCITALOPRAM OXALATE [Concomitant]
  6. GABAPENTIN [Concomitant]
  7. LORAZEPAM [Concomitant]
  8. RISPERIDONE [Concomitant]

REACTIONS (1)
  - NEUTROPENIA [None]
